FAERS Safety Report 24791148 (Version 1)
Quarter: 2024Q4

REPORT INFORMATION
  Report Type: Spontaneous
  Country: US (occurrence: US)
  Receive Date: 20241230
  Receipt Date: 20241230
  Transmission Date: 20250115
  Serious: No
  Sender: Haleon PLC
  Company Number: US-HALEON-2219379

PATIENT

DRUGS (1)
  1. VOLTAREN ARTHRITIS PAIN [Suspect]
     Active Substance: DICLOFENAC SODIUM
     Indication: Neck pain
     Dosage: 4 G ON ONE SIDE OF MY NECK AND 4 G ON THE OTHER. AND THEN 4 G ON MY LOWER BACK, SO IT^S 12 G.

REACTIONS (2)
  - Product use in unapproved indication [Unknown]
  - Product administered at inappropriate site [Unknown]
